APPROVED DRUG PRODUCT: NYSTATIN
Active Ingredient: NYSTATIN
Strength: 100,000 UNITS/ML
Dosage Form/Route: SUSPENSION;ORAL
Application: A214346 | Product #001 | TE Code: AA
Applicant: SENORES PHARMACEUTICALS INC
Approved: Mar 10, 2022 | RLD: No | RS: Yes | Type: RX